FAERS Safety Report 5422437-4 (Version None)
Quarter: 2007Q3

REPORT INFORMATION
  Report Type: 
  Country: None (occurrence: None)
  Receive Date: 20070822
  Receipt Date: 20070814
  Transmission Date: 20080115
  Serious: Yes (Life-Threatening, Hospitalization)
  Sender: FDA-Public Use
  Company Number: D0053864A

PATIENT
  Age: 49 Year
  Sex: Female
  Weight: 60 kg

DRUGS (3)
  1. LAMICTAL [Suspect]
     Indication: EPILEPSY
     Dosage: 50MG TWICE PER DAY
     Route: 048
     Dates: start: 20050301, end: 20070701
  2. ZONEGRAN [Concomitant]
     Route: 048
     Dates: start: 20070301, end: 20070301
  3. MIRTAZAPINE [Concomitant]
     Dosage: 30MG PER DAY
     Route: 048
     Dates: start: 20070612, end: 20070601

REACTIONS (6)
  - BLOOD BILIRUBIN INCREASED [None]
  - HEPATIC ENZYME INCREASED [None]
  - HEPATIC NECROSIS [None]
  - JAUNDICE [None]
  - NAUSEA [None]
  - SUBACUTE HEPATIC FAILURE [None]
